FAERS Safety Report 5227622-2 (Version None)
Quarter: 2007Q1

REPORT INFORMATION
  Report Type: 
  Country: None (occurrence: None)
  Receive Date: 20070202
  Receipt Date: 20070122
  Transmission Date: 20070707
  Serious: Yes (Other)
  Sender: FDA-Public Use
  Company Number: US-NOVOPROD-256486

PATIENT
  Sex: Female
  Weight: 79.365 kg

DRUGS (5)
  1. ACTIVELLA [Suspect]
     Indication: HORMONE THERAPY
     Dates: start: 20000901, end: 20040610
  2. PREMPRO [Suspect]
     Indication: HORMONE THERAPY
     Dosage: 0.625 / 5 MG, UNK
     Dates: start: 20001001, end: 20030911
  3. PREMARIN [Suspect]
     Indication: HORMONE THERAPY
     Dosage: 0.45, 0.9, 0.625 MG, UNK
     Dates: start: 19980901, end: 19991001
  4. PROVERA [Suspect]
     Indication: HORMONE THERAPY
     Dosage: 5 MG, UNK
     Dates: start: 19980901, end: 19991015
  5. CYCRIN [Suspect]
     Indication: HORMONE THERAPY
     Dosage: 10 MG, UNK
     Dates: start: 19980901, end: 19981001

REACTIONS (1)
  - PAPILLARY SEROUS ENDOMETRIAL CARCINOMA [None]
